FAERS Safety Report 12793821 (Version 1)
Quarter: 2016Q3

REPORT INFORMATION
  Report Type: Spontaneous
  Country: US (occurrence: US)
  Receive Date: 20160929
  Receipt Date: 20160929
  Transmission Date: 20161109
  Serious: No
  Sender: FDA-Public Use
  Company Number: US-JAZZ-2016-US-011973

PATIENT
  Age: 45 Year
  Sex: Female

DRUGS (49)
  1. LOMOTIL [Concomitant]
     Active Substance: ATROPINE SULFATE\DIPHENOXYLATE HYDROCHLORIDE
  2. OSCIMIN [Concomitant]
     Active Substance: HYOSCYAMINE SULFATE
  3. ZEBETA [Concomitant]
     Active Substance: BISOPROLOL FUMARATE
  4. TIZANIDINE HCL [Concomitant]
     Active Substance: TIZANIDINE HYDROCHLORIDE
  5. PROTONIX [Concomitant]
     Active Substance: PANTOPRAZOLE SODIUM
  6. PRIMIDONE. [Concomitant]
     Active Substance: PRIMIDONE
  7. XYREM [Suspect]
     Active Substance: SODIUM OXYBATE
     Indication: NARCOLEPSY
     Dosage: 3.75 G, BID
     Route: 048
     Dates: start: 200406, end: 200710
  8. XYREM [Suspect]
     Active Substance: SODIUM OXYBATE
     Indication: CATAPLEXY
     Dosage: 5 G, FIRST DOSE
     Route: 048
     Dates: start: 200710, end: 200808
  9. PREDNISONE. [Concomitant]
     Active Substance: PREDNISONE
  10. TRAMADOL HCL [Concomitant]
     Active Substance: TRAMADOL HYDROCHLORIDE
  11. MAXALT [Concomitant]
     Active Substance: RIZATRIPTAN BENZOATE
  12. ONDANSETRON [Concomitant]
     Active Substance: ONDANSETRON
  13. MICROGESTIN FE [Concomitant]
     Active Substance: ETHINYL ESTRADIOL\FERROUS FUMARATE\NORETHINDRONE ACETATE
  14. FENTANYL. [Concomitant]
     Active Substance: FENTANYL
  15. DIAZEPAM. [Concomitant]
     Active Substance: DIAZEPAM
  16. FLORINEF ACETATE [Concomitant]
     Active Substance: FLUDROCORTISONE ACETATE
  17. CLONAZEPAM. [Concomitant]
     Active Substance: CLONAZEPAM
  18. LOTRONEX [Concomitant]
     Active Substance: ALOSETRON HYDROCHLORIDE
  19. GABAPENTIN. [Concomitant]
     Active Substance: GABAPENTIN
  20. CYCLOBENZAPRINE [Concomitant]
     Active Substance: CYCLOBENZAPRINE
  21. LEXAPRO [Concomitant]
     Active Substance: ESCITALOPRAM OXALATE
  22. XANAX [Concomitant]
     Active Substance: ALPRAZOLAM
  23. XYREM [Suspect]
     Active Substance: SODIUM OXYBATE
     Dosage: 4 G, SECOND DOSE
     Route: 048
     Dates: start: 200710, end: 200808
  24. SENNA [Concomitant]
     Active Substance: SENNA LEAF\SENNOSIDES\SENNOSIDES A AND B
  25. DULOXETINE. [Concomitant]
     Active Substance: DULOXETINE
  26. LAMOTRIGINE. [Concomitant]
     Active Substance: LAMOTRIGINE
  27. SUMATRIPTAN. [Concomitant]
     Active Substance: SUMATRIPTAN
  28. HYDROMORPHONE HCL [Concomitant]
     Active Substance: HYDROMORPHONE HYDROCHLORIDE
  29. MESTINON [Concomitant]
     Active Substance: PYRIDOSTIGMINE BROMIDE
  30. IMITREX [Concomitant]
     Active Substance: SUMATRIPTAN SUCCINATE
  31. KETOCONAZOLE. [Concomitant]
     Active Substance: KETOCONAZOLE
  32. PSYLLIUM HUSK [Concomitant]
     Active Substance: PSYLLIUM HUSK
  33. BENADRYL ALLERGY [Concomitant]
     Active Substance: DIPHENHYDRAMINE HYDROCHLORIDE
  34. MIRALAX [Concomitant]
     Active Substance: POLYETHYLENE GLYCOL 3350
  35. VITAMIN C [Concomitant]
     Active Substance: ASCORBIC ACID
  36. ROBAXIN [Concomitant]
     Active Substance: METHOCARBAMOL
  37. WELCHOL [Concomitant]
     Active Substance: COLESEVELAM HYDROCHLORIDE
  38. BISOPROLOL FUMARATE. [Concomitant]
     Active Substance: BISOPROLOL FUMARATE
  39. FLUDROCORTISONE [Concomitant]
     Active Substance: FLUDROCORTISONE
  40. NIZORAL [Concomitant]
     Active Substance: KETOCONAZOLE
  41. XYREM [Suspect]
     Active Substance: SODIUM OXYBATE
     Dosage: DOSE ADJUSTMENTS
     Route: 048
     Dates: start: 200808, end: 201310
  42. XYREM [Suspect]
     Active Substance: SODIUM OXYBATE
     Dosage: 4.5 G, BID
     Route: 048
     Dates: start: 201310
  43. ERGOCALCIFEROL. [Concomitant]
     Active Substance: ERGOCALCIFEROL
  44. VOLTAREN [Concomitant]
     Active Substance: DICLOFENAC SODIUM
  45. BUTRANS [Concomitant]
     Active Substance: BUPRENORPHINE
  46. OXYCODONE AND ACETAMINOPHEN [Concomitant]
     Active Substance: ACETAMINOPHEN\OXYCODONE HYDROCHLORIDE
  47. HYDROCODONE/ACETAMINOPHEN [Concomitant]
     Active Substance: ACETAMINOPHEN\HYDROCODONE
  48. MORPHINE SULF [Concomitant]
     Active Substance: MORPHINE SULFATE
  49. CROMOLYN [Concomitant]
     Active Substance: CROMOLYN

REACTIONS (2)
  - Intervertebral disc degeneration [Not Recovered/Not Resolved]
  - Intervertebral disc protrusion [Unknown]

NARRATIVE: CASE EVENT DATE: 201604
